FAERS Safety Report 17952624 (Version 1)
Quarter: 2020Q2

REPORT INFORMATION
  Report Type: Spontaneous
  Country: US (occurrence: US)
  Receive Date: 20200626
  Receipt Date: 20200626
  Transmission Date: 20200714
  Serious: Yes (Other)
  Sender: FDA-Public Use
  Company Number: US-GILEAD-2020-0476289

PATIENT
  Age: 69 Year
  Sex: Male
  Weight: 110.5 kg

DRUGS (18)
  1. DEXAMETHASONE. [Concomitant]
     Active Substance: DEXAMETHASONE
  2. NICARDIPINE [Concomitant]
     Active Substance: NICARDIPINE
  3. ATORVASTATIN [Concomitant]
     Active Substance: ATORVASTATIN
  4. PRECEDEX [Concomitant]
     Active Substance: DEXMEDETOMIDINE HYDROCHLORIDE
  5. PROPOFOL. [Concomitant]
     Active Substance: PROPOFOL
  6. CARVEDILOL. [Concomitant]
     Active Substance: CARVEDILOL
  7. REMDESIVIR. [Suspect]
     Active Substance: REMDESIVIR
     Indication: COVID-19
     Dosage: 200 MG, QD
     Route: 042
     Dates: start: 20200614, end: 20200614
  8. REMDESIVIR. [Suspect]
     Active Substance: REMDESIVIR
     Dosage: 100 MG, QD
     Route: 042
     Dates: start: 20200615, end: 20200618
  9. CEFTRIAXONE. [Concomitant]
     Active Substance: CEFTRIAXONE
  10. ENOXAPARIN [Concomitant]
     Active Substance: ENOXAPARIN
  11. MIDAZOLAM. [Concomitant]
     Active Substance: MIDAZOLAM
  12. NOREPINEPHRINE. [Concomitant]
     Active Substance: NOREPINEPHRINE
  13. AMIODARONE [Concomitant]
     Active Substance: AMIODARONE
  14. ASPIRIN (E.C.) [Concomitant]
     Active Substance: ASPIRIN
  15. INSULIN LISPRO [Concomitant]
     Active Substance: INSULIN LISPRO
  16. AZITHROMYCIN ANHYDROUS. [Concomitant]
     Active Substance: AZITHROMYCIN ANHYDROUS
  17. FAMOTIDINE. [Concomitant]
     Active Substance: FAMOTIDINE
  18. FENTANYL. [Concomitant]
     Active Substance: FENTANYL

REACTIONS (1)
  - Blood bilirubin increased [Unknown]

NARRATIVE: CASE EVENT DATE: 20200616
